FAERS Safety Report 26024195 (Version 1)
Quarter: 2025Q4

REPORT INFORMATION
  Report Type: Spontaneous
  Country: US (occurrence: US)
  Receive Date: 20251111
  Receipt Date: 20251111
  Transmission Date: 20260118
  Serious: No
  Sender: TOLMAR
  Company Number: US-Tolmar-TLM-2025-08084

PATIENT
  Sex: Female

DRUGS (3)
  1. ELIGARD [Suspect]
     Active Substance: LEUPROLIDE ACETATE
     Indication: Breast cancer
     Dosage: NDC: 62935-0756-80?EXPIRATION DATE: OCT-2026; OCT-2026; OCT-2026?SN: 8580215820499?GTIN: 00362935756
  2. ELIGARD [Suspect]
     Active Substance: LEUPROLIDE ACETATE
     Dosage: REPLACEMENT DOSE
  3. DEVICE [Suspect]
     Active Substance: DEVICE
     Indication: Breast cancer
     Dosage: NDC: 62935-0756-80?EXPIRATION DATE: OCT-2026; OCT-2026; OCT-2026?SN: 8580215820499?GTIN: 00362935756

REACTIONS (3)
  - Intercepted product preparation error [Unknown]
  - Off label use [Unknown]
  - Product packaging quantity issue [Unknown]
